FAERS Safety Report 7094028-3 (Version None)
Quarter: 2010Q4

REPORT INFORMATION
  Report Type: 
  Country: None (occurrence: None)
  Receive Date: 20101110
  Receipt Date: 20101104
  Transmission Date: 20110411
  Serious: Yes (Life-Threatening, Hospitalization, Other)
  Sender: FDA-Public Use
  Company Number: GB-ABBOTT-10P-167-0666121-00

PATIENT
  Sex: Female
  Weight: 68 kg

DRUGS (1)
  1. REDUCTIL [Suspect]
     Indication: WEIGHT DECREASED
     Route: 048

REACTIONS (3)
  - MALAISE [None]
  - RENAL FAILURE [None]
  - TUBULOINTERSTITIAL NEPHRITIS [None]
